FAERS Safety Report 6712166-9 (Version None)
Quarter: 2010Q2

REPORT INFORMATION
  Report Type: 
  Country: None (occurrence: None)
  Receive Date: 20100505
  Receipt Date: 20100426
  Transmission Date: 20101027
  Serious: Yes (Other)
  Sender: FDA-Public Use
  Company Number: JP-EISAI INC.-E2090-01135-SPO-JP

PATIENT
  Sex: Female

DRUGS (6)
  1. EXCEGRAN [Suspect]
     Indication: EPILEPSY
     Route: 048
     Dates: start: 20081008, end: 20081118
  2. LEXOTAN [Concomitant]
     Indication: PANIC DISORDER
     Route: 048
     Dates: end: 20091110
  3. DOGMATYL [Concomitant]
     Indication: PANIC DISORDER
     Dates: end: 20080729
  4. DEPAKENE [Concomitant]
     Indication: EPILEPSY
     Route: 048
     Dates: end: 20080211
  5. SELENICA-R [Concomitant]
     Indication: EPILEPSY
     Route: 048
     Dates: start: 20080212, end: 20090220
  6. SELENICA-R [Concomitant]
     Route: 048
     Dates: start: 20090212

REACTIONS (1)
  - DRUG RASH WITH EOSINOPHILIA AND SYSTEMIC SYMPTOMS [None]
